FAERS Safety Report 5587110-0 (Version None)
Quarter: 2008Q1

REPORT INFORMATION
  Report Type: 
  Country: None (occurrence: None)
  Receive Date: 20080110
  Receipt Date: 20071231
  Transmission Date: 20080703
  Serious: Yes (Hospitalization)
  Sender: FDA-Public Use
  Company Number: B0501739A

PATIENT
  Age: 51 Year
  Sex: Female

DRUGS (11)
  1. ZOPHREN [Suspect]
     Dosage: 8MG PER DAY
     Route: 042
     Dates: start: 20070427
  2. ENDOXAN [Suspect]
     Dosage: 1G PER DAY
     Route: 042
     Dates: start: 20070427
  3. UROMITEXAN [Suspect]
     Dosage: 1800MG CYCLIC
     Route: 042
     Dates: start: 20070427
  4. PERINDOPRIL ERBUMINE [Concomitant]
     Dosage: 4MG PER DAY
     Route: 048
  5. KARDEGIC [Concomitant]
     Dosage: 160MG PER DAY
     Route: 048
  6. METHOTREXATE [Concomitant]
     Route: 048
     Dates: start: 20000101, end: 20070427
  7. CORTANCYL [Concomitant]
     Dosage: 5MG PER DAY
     Route: 048
     Dates: start: 20000101
  8. PLAQUENIL [Concomitant]
     Dosage: 200MG TWICE PER DAY
     Route: 048
  9. CHRONADALATE LP [Concomitant]
     Dosage: 30MG PER DAY
     Route: 048
  10. MOPRAL [Concomitant]
     Route: 048
  11. LEVOTHYROX [Concomitant]
     Dosage: 100MCG PER DAY
     Route: 048

REACTIONS (13)
  - BACK PAIN [None]
  - CHILLS [None]
  - CYANOSIS [None]
  - ERYTHEMA [None]
  - FACE OEDEMA [None]
  - HEADACHE [None]
  - HYPERSENSITIVITY [None]
  - HYPERTHERMIA [None]
  - NAUSEA [None]
  - PARAESTHESIA ORAL [None]
  - RESPIRATORY DISORDER [None]
  - SKIN DISCOLOURATION [None]
  - VOMITING [None]
